FAERS Safety Report 19163795 (Version 2)
Quarter: 2021Q2

REPORT INFORMATION
  Report Type: Spontaneous
  Country: GB (occurrence: GB)
  Receive Date: 20210421
  Receipt Date: 20210514
  Transmission Date: 20210717
  Serious: Yes (Other)
  Sender: FDA-Public Use
  Company Number: GB-PFIZER INC-2978776

PATIENT
  Age: 41 Year
  Sex: Female

DRUGS (6)
  1. DAPTOMYCIN. [Suspect]
     Active Substance: DAPTOMYCIN
     Dosage: 340 MG, ONE DAY BREAK AFTER 14 DAYS
     Route: 042
     Dates: start: 20150703
  2. GENTAMICIN SULFATE. [Suspect]
     Active Substance: GENTAMICIN SULFATE
     Dosage: ONE DAY BREAK AFTER 14 DAYS
     Route: 065
     Dates: start: 20150703
  3. METOJECT [Suspect]
     Active Substance: METHOTREXATE SODIUM
     Dosage: 20 MG, WEEKLY
     Route: 065
  4. METHOTREXATE SODIUM. [Suspect]
     Active Substance: METHOTREXATE SODIUM
     Dosage: 20 MG, FREQ: 1 WEEK; INTERVAL: 1 (WEEKLY)
  5. TOCILIZUMAB. [Suspect]
     Active Substance: TOCILIZUMAB
     Dosage: FREQ: 1 MONTH; INTERVAL: 1 (EVERY MONTH; EVERY 4 WEEKLY)
     Route: 065
  6. GENTAMICIN. [Concomitant]
     Active Substance: GENTAMICIN
     Dosage: UNK

REACTIONS (5)
  - Fatigue [Unknown]
  - Arthralgia [Unknown]
  - Candida infection [Unknown]
  - Arthritis bacterial [Unknown]
  - Nausea [Unknown]
